FAERS Safety Report 10072615 (Version 1)
Quarter: 2014Q2

REPORT INFORMATION
  Report Type: Spontaneous
  Country: BH (occurrence: BH)
  Receive Date: 20140411
  Receipt Date: 20140411
  Transmission Date: 20141212
  Serious: Yes (Death, Hospitalization)
  Sender: FDA-Public Use
  Company Number: PHHY2014BH041230

PATIENT
  Age: 11 Month
  Sex: Male
  Weight: 8 kg

DRUGS (14)
  1. DEFEROXAMINE [Suspect]
     Indication: SERUM FERRITIN INCREASED
     Dosage: 4 G/DAY
     Route: 041
  2. IMMUNOGLOBULIN I.V [Concomitant]
  3. IMMUNOGLOBULIN I.V [Concomitant]
     Dosage: 1 G/KG
  4. METHYLPREDNISOLONE [Concomitant]
     Indication: LIVER FUNCTION TEST ABNORMAL
  5. METHYLPREDNISOLONE [Concomitant]
     Indication: IMMUNOSUPPRESSION
     Dosage: 1 MG/KG, UNK
  6. METHYLPREDNISOLONE [Concomitant]
     Dosage: 30 MG/KG/DAY
  7. PREDNISOLONE [Concomitant]
     Indication: IMMUNOSUPPRESSION
     Dosage: 5 MG, TID
  8. PREDNISOLONE [Concomitant]
     Dosage: 2 MG/KG/DAY
  9. PREDNISOLONE [Concomitant]
     Dosage: 2.5 MG/KG/DAY
  10. CEFOTAXIME [Concomitant]
  11. URSODEOXYCHOLIC ACID [Concomitant]
  12. VIT. E [Concomitant]
     Route: 048
  13. VITA K [Concomitant]
     Route: 042
  14. RITUXIMAB [Concomitant]
     Dosage: 10 MG/KG
     Route: 041

REACTIONS (12)
  - Death [Fatal]
  - Hypoxic-ischaemic encephalopathy [Unknown]
  - General physical health deterioration [Unknown]
  - Depressed level of consciousness [Unknown]
  - Convulsion [Unknown]
  - Brain oedema [Unknown]
  - Mydriasis [Unknown]
  - Pupillary reflex impaired [Unknown]
  - Hernia [Unknown]
  - Hypotension [Unknown]
  - Haematemesis [Unknown]
  - Haemoglobin decreased [Unknown]
